FAERS Safety Report 4377733-9 (Version None)
Quarter: 2004Q2

REPORT INFORMATION
  Report Type: 
  Country: None (occurrence: None)
  Receive Date: 20040615
  Receipt Date: 20040607
  Transmission Date: 20050107
  Serious: Yes (Hospitalization)
  Sender: FDA-Public Use
  Company Number: FR-BRISTOL-MYERS SQUIBB COMPANY-12607198

PATIENT
  Age: 65 Year
  Sex: Male

DRUGS (2)
  1. TAXOL [Suspect]
     Indication: LUNG NEOPLASM MALIGNANT
     Route: 042
     Dates: start: 20040601, end: 20040601
  2. PARAPLATIN [Suspect]
     Indication: LUNG NEOPLASM MALIGNANT
     Dosage: AUC 5
     Route: 042
     Dates: start: 20040601, end: 20040601

REACTIONS (1)
  - CYTOLYTIC HEPATITIS [None]
